FAERS Safety Report 19053711 (Version 1)
Quarter: 2021Q1

REPORT INFORMATION
  Report Type: Spontaneous
  Country: US (occurrence: US)
  Receive Date: 20210324
  Receipt Date: 20210324
  Transmission Date: 20210420
  Serious: No
  Sender: FDA-Public Use
  Company Number: US-ASTRAZENECA-2021A085036

PATIENT
  Age: 24593 Day
  Sex: Female
  Weight: 44.5 kg

DRUGS (3)
  1. GABAPENTIN. [Concomitant]
     Active Substance: GABAPENTIN
  2. PULMICORT FLEXHALER [Suspect]
     Active Substance: BUDESONIDE
     Indication: ASTHMA
     Route: 055
     Dates: start: 2011
  3. PULMICORT FLEXHALER [Suspect]
     Active Substance: BUDESONIDE
     Indication: BRONCHITIS
     Route: 055
     Dates: start: 2011

REACTIONS (6)
  - Intentional product misuse [Unknown]
  - Device malfunction [Unknown]
  - Unevaluable event [Unknown]
  - Product taste abnormal [Unknown]
  - Sinusitis [Unknown]
  - Vertigo [Unknown]

NARRATIVE: CASE EVENT DATE: 202102
